FAERS Safety Report 9453607 (Version 1)
Quarter: 2013Q3

REPORT INFORMATION
  Report Type: Spontaneous
  Country: US (occurrence: US)
  Receive Date: 20130812
  Receipt Date: 20130812
  Transmission Date: 20140515
  Serious: No
  Sender: FDA-Public Use
  Company Number: US-009507513-1307USA014662

PATIENT
  Sex: Male

DRUGS (1)
  1. PEGINTRON [Suspect]
     Dosage: UNK
     Dates: start: 20130430

REACTIONS (4)
  - Underdose [Unknown]
  - Product quality issue [Unknown]
  - Multiple use of single-use product [Unknown]
  - No adverse event [Unknown]
